FAERS Safety Report 26129106 (Version 2)
Quarter: 2025Q4

REPORT INFORMATION
  Report Type: Spontaneous
  Country: TW (occurrence: TW)
  Receive Date: 20251208
  Receipt Date: 20251209
  Transmission Date: 20260118
  Serious: Yes (Hospitalization)
  Sender: SANOFI AVENTIS
  Company Number: TW-SA-2025SA359397

PATIENT
  Age: 61 Year
  Sex: Male
  Weight: 68.9 kg

DRUGS (11)
  1. TAXOTERE [Suspect]
     Active Substance: DOCETAXEL
     Indication: Prostate cancer
     Dosage: 75 MG/M2 (FOR SINGLE USE IMMEDIATELY)
     Route: 041
     Dates: start: 20251023, end: 20251023
  2. AVODART [Concomitant]
     Active Substance: DUTASTERIDE
     Dosage: 1 DF, QD
     Dates: start: 20251018, end: 20251101
  3. NUBEQA [Concomitant]
     Active Substance: DAROLUTAMIDE
     Dosage: 2 DF, BID
     Dates: start: 20251021, end: 20251031
  4. Acetal [Concomitant]
     Dosage: 1 DF, PRN
     Dates: start: 20251022, end: 20251023
  5. Mosapulin [Concomitant]
     Dosage: 1 DF, TID
     Dates: start: 20251022, end: 20251101
  6. XGEVA [Concomitant]
     Active Substance: DENOSUMAB
     Dosage: 1 DF (1 VIAL) (FOR SINGLE USE IMMEDIATELY)
     Route: 058
     Dates: start: 20251022, end: 20251022
  7. Methasone [Concomitant]
     Dosage: 1 DF (1 AMP) (FOR SINGLE USE IMMEDIATELY)
     Route: 041
     Dates: start: 20251023, end: 20251023
  8. Ulcertin [Concomitant]
     Dosage: 1 DF (1 AMP)
     Route: 041
     Dates: start: 20251023, end: 20251023
  9. DIPHENHYDRAMINE HYDROCHLORIDE [Concomitant]
     Active Substance: DIPHENHYDRAMINE HYDROCHLORIDE
     Dosage: 1 DF (1 AMP)
     Route: 041
     Dates: start: 20251023, end: 20251023
  10. ALLEGRA [Concomitant]
     Active Substance: FEXOFENADINE HYDROCHLORIDE
     Dosage: 1 DF, BID
     Route: 048
  11. LEUPLIN [Concomitant]
     Active Substance: LEUPROLIDE ACETATE
     Dosage: 1 DF (1 SYRINGE)
     Route: 058
     Dates: start: 20251024, end: 20251024

REACTIONS (1)
  - Administration site extravasation [Recovering/Resolving]

NARRATIVE: CASE EVENT DATE: 20251024
